FAERS Safety Report 13078330 (Version 1)
Quarter: 2017Q1

REPORT INFORMATION
  Report Type: Spontaneous
  Country: GB (occurrence: GB)
  Receive Date: 20170102
  Receipt Date: 20170102
  Transmission Date: 20170428
  Serious: Yes (Hospitalization, Other)
  Sender: FDA-Public Use
  Company Number: GB-ORION CORPORATION ORION PHARMA-TREX2016-2833

PATIENT
  Age: 68 Year
  Sex: Female
  Weight: 59.25 kg

DRUGS (7)
  1. PHENOXYMETHYLPENICILLIN [Concomitant]
     Active Substance: PENICILLIN V
     Route: 065
  2. ASPIRIN. [Concomitant]
     Active Substance: ASPIRIN
     Route: 065
  3. LANSOPRAZOLE. [Concomitant]
     Active Substance: LANSOPRAZOLE
     Route: 065
  4. METHOTREXATE (TRADE NAME UNKNOWN) [Suspect]
     Active Substance: METHOTREXATE
     Indication: RHEUMATOID ARTHRITIS
     Route: 048
     Dates: start: 20161129, end: 20161216
  5. BISOPROLOL [Concomitant]
     Active Substance: BISOPROLOL
     Route: 065
  6. FOLIC ACID. [Concomitant]
     Active Substance: FOLIC ACID
     Route: 065
  7. ATORVASTATIN [Concomitant]
     Active Substance: ATORVASTATIN
     Route: 065

REACTIONS (12)
  - Diarrhoea haemorrhagic [Unknown]
  - Pancytopenia [Unknown]
  - Petechiae [Unknown]
  - Inappropriate schedule of drug administration [Recovering/Resolving]
  - Glossodynia [Unknown]
  - Haematemesis [Unknown]
  - Accidental overdose [Recovering/Resolving]
  - Lip swelling [Unknown]
  - Oral candidiasis [Unknown]
  - Productive cough [Unknown]
  - Mucosal inflammation [Unknown]
  - Oropharyngeal pain [Unknown]

NARRATIVE: CASE EVENT DATE: 20161213
